FAERS Safety Report 13006440 (Version 2)
Quarter: 2016Q4

REPORT INFORMATION
  Report Type: Spontaneous
  Country: DE (occurrence: DE)
  Receive Date: 20161207
  Receipt Date: 20161212
  Transmission Date: 20170207
  Serious: Yes (Hospitalization)
  Sender: FDA-Public Use
  Company Number: DE-TEVA-718361GER

PATIENT
  Age: 65 Year
  Sex: Male
  Weight: 105 kg

DRUGS (4)
  1. IRINOTECAN AUROBINDO 20 MG/ML CONCENTRATE FOR SOLUTION FOR INFUSION [Suspect]
     Active Substance: IRINOTECAN
     Indication: PANCREATIC CARCINOMA
     Route: 042
     Dates: start: 20161011, end: 20161122
  2. IRINOTECAN ACCORD [Concomitant]
     Active Substance: IRINOTECAN
     Dates: start: 20161122
  3. OXALIPLATIN ACCORD 200 MG [Concomitant]
     Indication: PANCREATIC CARCINOMA
     Route: 042
     Dates: start: 20161122
  4. FLUOROURACIL. [Concomitant]
     Active Substance: FLUOROURACIL
     Indication: PANCREATIC CARCINOMA
     Dosage: 400 MG/M2 AND 2400 MG/M2
     Route: 042
     Dates: start: 20161011

REACTIONS (2)
  - Tremor [Recovered/Resolved]
  - Hyperhidrosis [Recovered/Resolved]

NARRATIVE: CASE EVENT DATE: 20161122
